FAERS Safety Report 4933943-0 (Version None)
Quarter: 2006Q1

REPORT INFORMATION
  Report Type: 
  Country: None (occurrence: None)
  Receive Date: 20060303
  Receipt Date: 20060219
  Transmission Date: 20060701
  Serious: Yes (Other)
  Sender: FDA-Public Use
  Company Number: 2006024531

PATIENT
  Age: 27 Year
  Sex: Male
  Weight: 90.7194 kg

DRUGS (2)
  1. SUDAFED (PSEUDOEPHEDRINE) [Suspect]
     Indication: NASOPHARYNGITIS
     Dosage: 4 GELCAPS, ORAL
     Route: 048
     Dates: start: 20060219
  2. SUDAFED SEVERE COLD CAPLETS (PARACETAMOL, PSEUDOEPHEDRINE, DEXTROMETHO [Suspect]
     Indication: NASOPHARYNGITIS
     Dosage: 3 CAPLETS, ORAL
     Route: 048
     Dates: start: 20060219

REACTIONS (1)
  - ERECTILE DYSFUNCTION [None]
